FAERS Safety Report 9011048 (Version 4)
Quarter: 2014Q1

REPORT INFORMATION
  Report Type: Spontaneous
  Country: US (occurrence: US)
  Receive Date: 20130109
  Receipt Date: 20140212
  Transmission Date: 20141002
  Serious: Yes (Other)
  Sender: FDA-Public Use
  Company Number: US-GLAXOSMITHKLINE-A0987207A

PATIENT
  Age: 47 Year
  Sex: Female

DRUGS (14)
  1. REQUIP XL [Suspect]
     Indication: RESTLESS LEGS SYNDROME
     Dosage: 4MG PER DAY
     Route: 048
     Dates: start: 2008
  2. XANAX [Suspect]
     Indication: PRODUCT USED FOR UNKNOWN INDICATION
     Route: 065
  3. REQUIP [Suspect]
     Indication: RESTLESS LEGS SYNDROME
     Dosage: 4MG VARIABLE DOSE
     Route: 048
     Dates: start: 2013
  4. PAXIL [Concomitant]
  5. BUSPAR [Concomitant]
  6. DICYCLOMINE HYDROCHLORIDE [Concomitant]
  7. PHENERGAN [Concomitant]
  8. PROTONIX [Concomitant]
  9. PROBIOTICS [Concomitant]
  10. COLACE [Concomitant]
  11. ZANTAC [Concomitant]
  12. BENADRYL [Concomitant]
  13. LINZESS [Concomitant]
  14. DEXILANT [Concomitant]

REACTIONS (9)
  - Grand mal convulsion [Recovered/Resolved]
  - Muscle spasms [Not Recovered/Not Resolved]
  - Drug ineffective [Unknown]
  - Muscle twitching [Not Recovered/Not Resolved]
  - Dyskinesia [Not Recovered/Not Resolved]
  - Extra dose administered [Unknown]
  - Treatment noncompliance [Unknown]
  - Insomnia [Not Recovered/Not Resolved]
  - Overdose [Not Recovered/Not Resolved]
